FAERS Safety Report 5719711-0 (Version None)
Quarter: 2008Q2

REPORT INFORMATION
  Report Type: 
  Country: None (occurrence: None)
  Receive Date: 20080428
  Receipt Date: 20070316
  Transmission Date: 20081010
  Serious: No
  Sender: FDA-Public Use
  Company Number: A0643979A

PATIENT
  Age: 9 Month
  Sex: Female

DRUGS (4)
  1. ZOFRAN [Suspect]
     Indication: DRUG USE FOR UNKNOWN INDICATION
     Route: 065
  2. CHEMOTHERAPY [Concomitant]
     Indication: GLIOMA
  3. VINCRISTINE [Concomitant]
     Indication: GLIOMA
  4. CARBOPLATIN [Concomitant]
     Indication: GLIOMA

REACTIONS (2)
  - FUNGAL INFECTION [None]
  - TONGUE BLACK HAIRY [None]
